FAERS Safety Report 11604056 (Version 1)
Quarter: 2015Q4

REPORT INFORMATION
  Report Type: Other
  Country: US (occurrence: US)
  Receive Date: 20151007
  Receipt Date: 20151007
  Transmission Date: 20160304
  Serious: Yes (Hospitalization)
  Sender: FDA-Public Use
  Company Number: US-ENDO PHARMACEUTICALS INC-2015-003148

PATIENT
  Age: 54 Year
  Sex: Male

DRUGS (10)
  1. DIFLUPREDNATE [Suspect]
     Active Substance: DIFLUPREDNATE
     Indication: CORNEAL OEDEMA
     Dosage: 1 DROP EVERY 2 HOURS
     Route: 047
  2. DIFLUPREDNATE [Suspect]
     Active Substance: DIFLUPREDNATE
     Dosage: EVERY 2 HOURS
     Route: 047
  3. PHENYLEPHRINE [Concomitant]
     Active Substance: PHENYLEPHRINE\PHENYLEPHRINE HYDROCHLORIDE
     Route: 065
  4. PREDNISONE TABLETS [Suspect]
     Active Substance: PREDNISONE
     Dosage: 60 MG PER DAILY
     Route: 048
  5. DIFLUPREDNATE [Suspect]
     Active Substance: DIFLUPREDNATE
     Dosage: 1 DROP 4 TIMES A DAY
     Route: 047
  6. DIFLUPREDNATE [Suspect]
     Active Substance: DIFLUPREDNATE
     Dosage: 1 DROP EVERY HOUR
     Route: 047
  7. PHENYLEPHRINE [Concomitant]
     Active Substance: PHENYLEPHRINE\PHENYLEPHRINE HYDROCHLORIDE
     Indication: MYDRIASIS
     Dosage: 4 TIMES A DAY
     Route: 065
  8. PREDNISONE TABLETS [Suspect]
     Active Substance: PREDNISONE
     Indication: PRODUCT USED FOR UNKNOWN INDICATION
     Dosage: 60 MG PER DAY
     Route: 048
  9. ATROPINE. [Concomitant]
     Active Substance: ATROPINE
     Indication: MYDRIASIS
     Route: 065
  10. PREDNISONE TABLETS [Suspect]
     Active Substance: PREDNISONE
     Dosage: 20 MG DAILY EVERY TWO DAYS
     Route: 048

REACTIONS (1)
  - Corneal oedema [Recovered/Resolved]
